FAERS Safety Report 4300147-4 (Version None)
Quarter: 2004Q1

REPORT INFORMATION
  Report Type: 
  Country: None (occurrence: None)
  Receive Date: 20040218
  Receipt Date: 20040204
  Transmission Date: 20041129
  Serious: Yes (Disabling)
  Sender: FDA-Public Use
  Company Number: 200310323

PATIENT
  Sex: Male

DRUGS (1)
  1. DYSPORT (BOTULINUM TOXIN TYPE A) [Suspect]
     Indication: JOINT DISLOCATION
     Dosage: 50 UNITS PRN IM

REACTIONS (6)
  - DYSPHAGIA [None]
  - FATIGUE [None]
  - JAW DISORDER [None]
  - MUSCLE TIGHTNESS [None]
  - SPEECH DISORDER [None]
  - TREMOR [None]
